FAERS Safety Report 7394650-0 (Version None)
Quarter: 2011Q1

REPORT INFORMATION
  Report Type: 
  Country: None (occurrence: None)
  Receive Date: 20110331
  Receipt Date: 20110331
  Transmission Date: 20110831
  Serious: Yes (Other)
  Sender: FDA-Public Use
  Company Number: None

PATIENT
  Age: 53 Year
  Sex: Male
  Weight: 81.6475 kg

DRUGS (2)
  1. CELEXA [Suspect]
     Indication: DEPRESSION
     Dosage: 20MG ONCE PER DAY PO
     Route: 048
     Dates: start: 20101023, end: 20110329
  2. CELEXA [Suspect]
     Indication: ANXIETY
     Dosage: 20MG ONCE PER DAY PO
     Route: 048
     Dates: start: 20101023, end: 20110329

REACTIONS (5)
  - PRODUCT QUALITY ISSUE [None]
  - MOOD SWINGS [None]
  - ANXIETY [None]
  - SUICIDAL IDEATION [None]
  - DEPRESSION [None]
